FAERS Safety Report 21184597 (Version 1)
Quarter: 2022Q3

REPORT INFORMATION
  Report Type: Spontaneous
  Country: CA (occurrence: CA)
  Receive Date: 20220808
  Receipt Date: 20220808
  Transmission Date: 20221027
  Serious: Yes (Other)
  Sender: FDA-Public Use
  Company Number: None

PATIENT
  Age: 78 Year
  Sex: Female

DRUGS (6)
  1. CISPLATIN [Suspect]
     Active Substance: CISPLATIN
     Indication: Small cell lung cancer
     Dosage: SOLUTION INTRAVENOUS
     Route: 042
  2. ETOPOSIDE [Suspect]
     Active Substance: ETOPOSIDE
     Indication: Small cell lung cancer
  3. MELATONIN [Concomitant]
     Active Substance: MELATONIN
  4. NICOTINE [Concomitant]
     Active Substance: NICOTINE
  5. UREA [Concomitant]
     Active Substance: UREA
  6. NICOTINE [Concomitant]
     Active Substance: NICOTINE
     Route: 062

REACTIONS (5)
  - Chest discomfort [Unknown]
  - Dizziness [Unknown]
  - Dyspnoea [Unknown]
  - Swelling [Unknown]
  - Weight increased [Unknown]
